FAERS Safety Report 7558216-1 (Version None)
Quarter: 2011Q2

REPORT INFORMATION
  Report Type: 
  Country: None (occurrence: None)
  Receive Date: 20110620
  Receipt Date: 20110609
  Transmission Date: 20111010
  Serious: Yes (Hospitalization)
  Sender: FDA-Public Use
  Company Number: US-ASTRAZENECA-2011SE35608

PATIENT
  Age: 81 Year
  Sex: Female

DRUGS (1)
  1. CRESTOR [Suspect]
     Route: 048

REACTIONS (9)
  - EMPHYSEMA [None]
  - NEOPLASM [None]
  - HALLUCINATION [None]
  - SYSTEMIC LUPUS ERYTHEMATOSUS [None]
  - CARDIAC OPERATION [None]
  - CORONARY ARTERY BYPASS [None]
  - STENT PLACEMENT [None]
  - RETCHING [None]
  - WEIGHT DECREASED [None]
